FAERS Safety Report 4430786-1 (Version None)
Quarter: 2004Q3

REPORT INFORMATION
  Report Type: 
  Country: None (occurrence: None)
  Receive Date: 20040823
  Receipt Date: 20040817
  Transmission Date: 20050211
  Serious: Yes (Death, Life-Threatening, Hospitalization)
  Sender: FDA-Public Use
  Company Number: 200413077FR

PATIENT
  Age: 69 Year
  Sex: Male

DRUGS (2)
  1. ARAVA [Suspect]
     Route: 048
     Dates: end: 20040615
  2. UNKNOWN DRUG [Concomitant]

REACTIONS (17)
  - ACUTE RESPIRATORY FAILURE [None]
  - ARTHRITIS BACTERIAL [None]
  - CARDIAC FAILURE [None]
  - COMA [None]
  - GENERAL PHYSICAL HEALTH DETERIORATION [None]
  - HAEMODYNAMIC INSTABILITY [None]
  - HYPERCAPNIA [None]
  - HYPONATRAEMIA [None]
  - MULTI-ORGAN FAILURE [None]
  - MYOCARDIAL INFARCTION [None]
  - PLEURISY [None]
  - PURULENCE [None]
  - RENAL FAILURE ACUTE [None]
  - SEPSIS [None]
  - SHOCK [None]
  - STAPHYLOCOCCAL INFECTION [None]
  - SYNOVITIS [None]
